FAERS Safety Report 5405077-2 (Version None)
Quarter: 2007Q3

REPORT INFORMATION
  Report Type: 
  Country: None (occurrence: None)
  Receive Date: 20070803
  Receipt Date: 20070720
  Transmission Date: 20080115
  Serious: Yes (Other)
  Sender: FDA-Public Use
  Company Number: JP-ROCHE-486193

PATIENT
  Age: 8 Year
  Sex: Male
  Weight: 33 kg

DRUGS (3)
  1. TAMIFLU [Suspect]
     Dosage: FORM: DRY SYRUP.
     Route: 048
     Dates: start: 20070226
  2. MUCOSAL [Concomitant]
     Route: 048
     Dates: start: 20070226
  3. MUCODYNE [Concomitant]
     Route: 048
     Dates: start: 20070226

REACTIONS (3)
  - CONVULSION [None]
  - DEPRESSED LEVEL OF CONSCIOUSNESS [None]
  - DYSKINESIA [None]
